FAERS Safety Report 24836743 (Version 3)
Quarter: 2025Q3

REPORT INFORMATION
  Report Type: Report from Study
  Country: MA (occurrence: MA)
  Receive Date: 20250113
  Receipt Date: 20250923
  Transmission Date: 20251020
  Serious: Yes (Death, Other)
  Sender: ALEXION PHARMACEUTICALS
  Company Number: MA-AstraZeneca-CH-00783292A

PATIENT
  Age: 62 Year
  Sex: Male

DRUGS (1)
  1. TAGRISSO [Suspect]
     Active Substance: OSIMERTINIB
     Indication: Non-small cell lung cancer
     Dosage: 80 MILLIGRAM, QD
     Dates: start: 20240314

REACTIONS (2)
  - Death [Fatal]
  - Inability to afford medication [Unknown]

NARRATIVE: CASE EVENT DATE: 20241122
